FAERS Safety Report 8422967-7 (Version None)
Quarter: 2012Q2

REPORT INFORMATION
  Report Type: 
  Country: None (occurrence: None)
  Receive Date: 20120608
  Receipt Date: 20120531
  Transmission Date: 20120825
  Serious: Yes (Other)
  Sender: FDA-Public Use
  Company Number: IT-GLAXOSMITHKLINE-B0806600A

PATIENT
  Age: 72 Year
  Sex: Female

DRUGS (8)
  1. INSULIN [Concomitant]
  2. IRBESARTAN [Concomitant]
  3. ASPIRIN [Concomitant]
  4. FONDAPARINUX SODIUM [Suspect]
     Route: 065
  5. CLOPIDOGREL [Concomitant]
  6. DIURETICS [Concomitant]
  7. LEVOSIMENDAN [Concomitant]
  8. ATORVASTATIN CALCIUM [Concomitant]

REACTIONS (1)
  - THROMBOSIS [None]
